FAERS Safety Report 18090215 (Version 1)
Quarter: 2020Q3

REPORT INFORMATION
  Report Type: Report from Study
  Country: BR (occurrence: BR)
  Receive Date: 20200729
  Receipt Date: 20200729
  Transmission Date: 20201103
  Serious: Yes (Other)
  Sender: FDA-Public Use
  Company Number: NVSC2020BR209369

PATIENT
  Age: 62 Year
  Sex: Female

DRUGS (1)
  1. GILENYA [Suspect]
     Active Substance: FINGOLIMOD HYDROCHLORIDE
     Indication: MULTIPLE SCLEROSIS
     Dosage: UNK
     Route: 065

REACTIONS (7)
  - Pyrexia [Unknown]
  - Cough [Unknown]
  - COVID-19 [Recovered/Resolved]
  - Cystitis [Unknown]
  - Dysuria [Unknown]
  - Pollakiuria [Unknown]
  - Renal disorder [Unknown]

NARRATIVE: CASE EVENT DATE: 20200616
